FAERS Safety Report 7583074-9 (Version None)
Quarter: 2011Q2

REPORT INFORMATION
  Report Type: 
  Country: None (occurrence: None)
  Receive Date: 20110527
  Receipt Date: 20101004
  Transmission Date: 20111010
  Serious: Yes (Hospitalization, Other)
  Sender: FDA-Public Use
  Company Number: US201005000601

PATIENT
  Sex: Female
  Weight: 77.6 kg

DRUGS (8)
  1. BYETTA [Suspect]
     Dosage: SUBCUTANEOUS
     Route: 058
     Dates: end: 20090601
  2. DICLOFENAC SODIUM [Concomitant]
  3. PAXIL [Concomitant]
  4. HYDROCODONE (HYDROCODONE) [Concomitant]
  5. NOVOLOG [Concomitant]
  6. LEVEMIR [Concomitant]
  7. METFORMIN HCL [Concomitant]
  8. EXENATIDE PEN (EXENATIDE PEN) [Concomitant]

REACTIONS (1)
  - PANCREATITIS ACUTE [None]
